FAERS Safety Report 19766459 (Version 3)
Quarter: 2021Q4

REPORT INFORMATION
  Report Type: Spontaneous
  Country: JP (occurrence: JP)
  Receive Date: 20210831
  Receipt Date: 20211229
  Transmission Date: 20220303
  Serious: Yes (Hospitalization, Other)
  Sender: FDA-Public Use
  Company Number: JP-ASTELLAS-2021JP016383

PATIENT
  Age: 83 Year
  Sex: Male
  Weight: 45 kg

DRUGS (10)
  1. XTANDI [Suspect]
     Active Substance: ENZALUTAMIDE
     Indication: Hormone-refractory prostate cancer
     Dosage: 160 MG, ONCE DAILY, AFTER BREAKFAST
     Route: 048
     Dates: start: 20210811, end: 20210828
  2. DEGARELIX [Concomitant]
     Active Substance: DEGARELIX
     Indication: Hormone-refractory prostate cancer
     Route: 058
     Dates: start: 20160926
  3. DENOSUMAB [Concomitant]
     Active Substance: DENOSUMAB
     Indication: Hormone-refractory prostate cancer
     Route: 058
     Dates: start: 20161021
  4. LOXOPROFEN SODIUM [Concomitant]
     Active Substance: LOXOPROFEN SODIUM
     Indication: Pain
     Route: 048
     Dates: start: 20210702
  5. LANSOPRAZOLE [Concomitant]
     Active Substance: LANSOPRAZOLE
     Indication: Pain
     Route: 048
     Dates: start: 20210702
  6. LASIX [Concomitant]
     Active Substance: FUROSEMIDE
     Indication: Product used for unknown indication
     Dosage: UNK UNK, UNKNOWN FREQ.
     Route: 065
     Dates: start: 20210828
  7. BISOPROLOL FUMARATE [Concomitant]
     Active Substance: BISOPROLOL FUMARATE
     Indication: Product used for unknown indication
     Dosage: UNK UNK, UNKNOWN FREQ.
     Route: 065
     Dates: start: 20210830
  8. ELIQUIS [Concomitant]
     Active Substance: APIXABAN
     Indication: Product used for unknown indication
     Dosage: UNK UNK, UNKNOWN FREQ.
     Route: 065
     Dates: start: 20210830
  9. SPIRONOLACTONE [Concomitant]
     Active Substance: SPIRONOLACTONE
     Indication: Product used for unknown indication
     Dosage: UNK UNK, UNKNOWN FREQ.
     Route: 065
     Dates: start: 20210830
  10. SAMSCA [Concomitant]
     Active Substance: TOLVAPTAN
     Indication: Product used for unknown indication
     Dosage: UNK UNK, UNKNOWN FREQ.
     Route: 065
     Dates: start: 20210830

REACTIONS (2)
  - Cardiac failure acute [Recovering/Resolving]
  - Hypercapnia [Recovering/Resolving]

NARRATIVE: CASE EVENT DATE: 20210828
